FAERS Safety Report 14350211 (Version 1)
Quarter: 2018Q1

REPORT INFORMATION
  Report Type: Spontaneous
  Country: US (occurrence: US)
  Receive Date: 20180103
  Receipt Date: 20180103
  Transmission Date: 20180509
  Serious: Yes (Disabling)
  Sender: FDA-Public Use
  Company Number: None

PATIENT
  Age: 83 Year
  Sex: Female
  Weight: 72 kg

DRUGS (16)
  1. VITAMIN E [Concomitant]
     Active Substance: .ALPHA.-TOCOPHEROL
  2. VITAMIN B COMPLEX WITH C [Concomitant]
     Active Substance: ASCORBIC ACID\CALCIUM PANTOTHENATE\CYANOCOBALAMIN\NIACINAMIDE\PYRIDOXINE HYDROCHLORIDE\RIBOFLAVIN\THIAMINE MONONITRATE
  3. CENTRUM SILVER MULTIVITAMINS [Concomitant]
  4. VITAMIN C [Concomitant]
     Active Substance: ASCORBIC ACID
  5. ALEVE [Concomitant]
     Active Substance: NAPROXEN SODIUM
  6. AREDS2 [Concomitant]
  7. VITAMIN D3 [Concomitant]
     Active Substance: CHOLECALCIFEROL
  8. MAGNESIUM [Concomitant]
     Active Substance: MAGNESIUM
  9. OMEGA 3 FISH OIL [Concomitant]
     Active Substance: FISH OIL\OMEGA-3 FATTY ACIDS
  10. GLUTATHIONE [Concomitant]
     Active Substance: GLUTATHIONE
  11. VITAMIN B12 [Concomitant]
     Active Substance: CYANOCOBALAMIN
  12. POLYMVA [Concomitant]
  13. COQ10 [Concomitant]
     Active Substance: UBIDECARENONE
  14. CIPROFLOXACIN HCL 250 MG (GENERIC FOR CIPRO 250 MG TAB) [Suspect]
     Active Substance: CIPROFLOXACIN HYDROCHLORIDE
     Indication: URINARY TRACT INFECTION
     Dosage: ?          QUANTITY:14 TABLET(S);?
     Route: 048
     Dates: start: 20170630, end: 20170706
  15. LEVOTHROID [Concomitant]
     Active Substance: LEVOTHYROXINE SODIUM
  16. GLUCOSAMINE [Concomitant]
     Active Substance: GLUCOSAMINE

REACTIONS (27)
  - Muscle spasms [None]
  - Pain in extremity [None]
  - Skin lesion [None]
  - Groin pain [None]
  - Diarrhoea [None]
  - Paraesthesia [None]
  - Gait disturbance [None]
  - Visual impairment [None]
  - Weight bearing difficulty [None]
  - Constipation [None]
  - Dysstasia [None]
  - Gastrointestinal disorder [None]
  - Dyspepsia [None]
  - Eye pruritus [None]
  - Arthralgia [None]
  - Tendonitis [None]
  - Musculoskeletal stiffness [None]
  - Vitreous floaters [None]
  - Fatigue [None]
  - Choking [None]
  - Gastrointestinal pain [None]
  - Asthenia [None]
  - Dysphagia [None]
  - Neuropathy peripheral [None]
  - Rash pruritic [None]
  - Hypoaesthesia [None]
  - Insomnia [None]

NARRATIVE: CASE EVENT DATE: 20170630
